FAERS Safety Report 9331194 (Version 2)
Quarter: 2014Q3

REPORT INFORMATION
  Report Type: Spontaneous
  Country: US (occurrence: US)
  Receive Date: 20130605
  Receipt Date: 20140731
  Transmission Date: 20150326
  Serious: Yes (Hospitalization, Other)
  Sender: FDA-Public Use
  Company Number: US-009507513-2010SP006041

PATIENT
  Sex: Female
  Weight: 58.6 kg

DRUGS (2)
  1. TYLENOL [Concomitant]
     Active Substance: ACETAMINOPHEN
     Dosage: TWO TABLETS EVERY 2-3 HOURS
     Route: 048
  2. NUVARING [Suspect]
     Active Substance: ETHINYL ESTRADIOL\ETONOGESTREL
     Indication: MENOPAUSAL SYMPTOMS
     Dosage: UNK
     Route: 067
     Dates: start: 200807, end: 20080922

REACTIONS (11)
  - Emotional disorder [Unknown]
  - Mallory-Weiss syndrome [Unknown]
  - Depression [Unknown]
  - Asthma [Unknown]
  - Hepatic mass [Unknown]
  - Off label use [Unknown]
  - Fatigue [Unknown]
  - Pneumonitis [Unknown]
  - Pulmonary embolism [Recovered/Resolved]
  - Deep vein thrombosis [Unknown]
  - Dyspnoea [Unknown]

NARRATIVE: CASE EVENT DATE: 200809
